FAERS Safety Report 4691000-5 (Version None)
Quarter: 2005Q2

REPORT INFORMATION
  Report Type: 
  Country: None (occurrence: None)
  Receive Date: 20050610
  Receipt Date: 20050530
  Transmission Date: 20051028
  Serious: Yes (Death, Hospitalization)
  Sender: FDA-Public Use
  Company Number: 2005059228

PATIENT
  Age: 72 Year
  Sex: Female
  Weight: 54 kg

DRUGS (18)
  1. ZITHROMAX [Suspect]
     Indication: UPPER RESPIRATORY TRACT INFECTION
     Dosage: 500 MG ORAL
     Route: 048
     Dates: start: 20050404, end: 20050401
  2. SOLETON                   (ZALTOPROFEN) [Suspect]
     Dosage: 240 MG ORAL
     Route: 048
     Dates: start: 20050404
  3. BENAZYL (CLEMASTINE FUMARATE) [Concomitant]
  4. CODEINE PHOSPHAGE    (CODEINE PHOSPHATE) [Concomitant]
  5. GLUCOSE (GLUCOSE) [Concomitant]
  6. SODIUM SALICYLATE ECT [Concomitant]
  7. FIRSTCIN                (CEFOZOPRAN HYDROCHLORIDE) [Concomitant]
  8. VITANEURIN            (THIAMINE HYDROCHLORIDE) [Concomitant]
  9. PL (PYRIDOXAL) [Concomitant]
  10. ISODINE (POVIDONE-IODINE) [Concomitant]
  11. LUGOL (IODINE, POTASSIUM IODIDE) [Concomitant]
  12. ALOSENN              (ACHIELLA, RUBIA ROOT TINCTURE, SENNA FRUIT, SENN [Concomitant]
  13. LASIX [Concomitant]
  14. HALCION [Concomitant]
  15. LIPITOR [Concomitant]
  16. HUSTAGIN              (PLANTAGO MAJOR) [Concomitant]
  17. TAKA-DIASTASE            (DIAASTASE, TAKA) [Concomitant]
  18. SP TROCHE (DEQUALINIUM CHLORIDE) [Concomitant]

REACTIONS (4)
  - CARDIAC ARREST [None]
  - ENCEPHALOPATHY [None]
  - INFLUENZA [None]
  - LOSS OF CONSCIOUSNESS [None]
